FAERS Safety Report 5081639-X (Version None)
Quarter: 2006Q3

REPORT INFORMATION
  Report Type: 
  Country: None (occurrence: None)
  Receive Date: 20060811
  Receipt Date: 20060804
  Transmission Date: 20061208
  Serious: Yes (Life-Threatening)
  Sender: FDA-Public Use
  Company Number: E3810-00114-SPO-FR

PATIENT
  Age: 55 Year
  Sex: Female
  Weight: 124 kg

DRUGS (8)
  1. RABEPRAZOLE SODIUM [Suspect]
     Indication: ABDOMINAL PAIN
     Dosage: 1 IN 1 D, ORAL
     Route: 048
  2. CITALOPRAM HYDROBROMIDE [Suspect]
     Indication: DYSTHYMIC DISORDER
     Dosage: 1 IN 1 D
  3. BUFLOMEDIL CHLORHYDRATE (BUFLOMEDIL) [Suspect]
     Indication: DECUBITUS ULCER
     Dosage: 300 MG
  4. BUFLOMEDIL CHLORHYDRATE (BUFLOMEDIL) [Suspect]
     Indication: SKIN ULCER
     Dosage: 300 MG
  5. OLMESARTAN MEDOXOMIL (OLMESARTAN) [Suspect]
     Indication: HYPERTENSION
     Dosage: 10 MG
  6. PLAVIX [Suspect]
     Dosage: 75 MG
  7. DAFALGAN CODEINE (PANADEINE CO) [Suspect]
     Indication: FIBROMYALGIA
  8. DAFALGAN CODEINE (PANADEINE CO) [Suspect]
     Indication: MUSCULOSKELETAL PAIN

REACTIONS (12)
  - COMPUTERISED TOMOGRAM ABNORMAL [None]
  - DEPRESSED LEVEL OF CONSCIOUSNESS [None]
  - GASTRIC ULCER PERFORATION [None]
  - HYPOTENSION [None]
  - INFECTED SKIN ULCER [None]
  - INFLAMMATION [None]
  - PERITONEAL PERFORATION [None]
  - PERITONITIS [None]
  - PNEUMOPERITONEUM [None]
  - RENAL FAILURE [None]
  - SEPSIS [None]
  - TACHYCARDIA [None]
